FAERS Safety Report 14331927 (Version 1)
Quarter: 2017Q4

REPORT INFORMATION
  Report Type: Spontaneous
  Country: US (occurrence: US)
  Receive Date: 20171227
  Receipt Date: 20171227
  Transmission Date: 20180321
  Serious: Yes (Life-Threatening, Hospitalization, Other)
  Sender: FDA-Public Use
  Company Number: None

PATIENT
  Age: 5 Year
  Sex: Male
  Weight: 15.9 kg

DRUGS (2)
  1. UNITUXIN [Suspect]
     Active Substance: DINUTUXIMAB
     Indication: NEUROBLASTOMA
     Route: 041
     Dates: start: 20171205, end: 20171208
  2. INTERLEUKIN [Concomitant]
     Active Substance: INTERLEUKIN NOS

REACTIONS (8)
  - Hypoxia [None]
  - Tachypnoea [None]
  - Wheezing [None]
  - Chest X-ray abnormal [None]
  - Bronchospasm [None]
  - Fluid retention [None]
  - Pyrexia [None]
  - Hypotension [None]

NARRATIVE: CASE EVENT DATE: 20171212
